FAERS Safety Report 21148134 (Version 1)
Quarter: 2022Q3

REPORT INFORMATION
  Report Type: Spontaneous
  Country: US (occurrence: None)
  Receive Date: 20220729
  Receipt Date: 20220729
  Transmission Date: 20221027
  Serious: Yes (Hospitalization, Other)
  Sender: FDA-Public Use
  Company Number: None

PATIENT
  Age: 81 Year
  Sex: Male

DRUGS (1)
  1. ABIRATERONE [Suspect]
     Active Substance: ABIRATERONE
     Dosage: FREQUENCY : DAILY;?
     Route: 048
     Dates: start: 202107

REACTIONS (10)
  - Hot flush [None]
  - Balance disorder [None]
  - Balance disorder [None]
  - Arthralgia [None]
  - Dyspnoea [None]
  - Fatigue [None]
  - Asthenia [None]
  - Diarrhoea [None]
  - Syncope [None]
  - Fall [None]

NARRATIVE: CASE EVENT DATE: 20220729
